FAERS Safety Report 16149696 (Version 2)
Quarter: 2019Q2

REPORT INFORMATION
  Report Type: Report from Study
  Country: JP (occurrence: JP)
  Receive Date: 20190402
  Receipt Date: 20190404
  Transmission Date: 20190711
  Serious: Yes (Hospitalization)
  Sender: FDA-Public Use
  Company Number: GXJP2018JP001454

PATIENT
  Age: 32 Year
  Sex: Male
  Weight: 75 kg

DRUGS (26)
  1. FILGRASTIM BS INJ. SYRINGE [Suspect]
     Active Substance: FILGRASTIM
     Dosage: 75 UG/M2, QD
     Route: 058
     Dates: start: 20150220, end: 20150221
  2. ISOTONIC SODIUM CHLORIDE SOLUTION [Concomitant]
     Active Substance: SODIUM CHLORIDE
     Indication: PROPHYLAXIS
     Dosage: 1700 ML, QD
     Route: 041
     Dates: start: 20150130, end: 20150130
  3. GLICOSE [Concomitant]
     Active Substance: DEXTROSE
     Dosage: 250 ML, QD
     Route: 041
     Dates: start: 20150130, end: 20150130
  4. MANNITOL. [Concomitant]
     Active Substance: MANNITOL
     Indication: PROPHYLAXIS
     Dosage: 200 ML, QD
     Route: 042
     Dates: start: 20150109, end: 20150109
  5. DOCETAXEL. [Suspect]
     Active Substance: DOCETAXEL
     Indication: NASOPHARYNGEAL CANCER
     Dosage: 118.86 MG, QD
     Route: 041
     Dates: start: 20150109, end: 20150109
  6. CISPLATIN. [Suspect]
     Active Substance: CISPLATIN
     Indication: NASOPHARYNGEAL CANCER
     Dosage: 158.48 MG, QD
     Route: 041
     Dates: start: 20150109, end: 20150109
  7. HARTMANN [Concomitant]
     Active Substance: CALCIUM CHLORIDE\POTASSIUM CHLORIDE\SODIUM CHLORIDE\SODIUM LACTATE
     Indication: PRODUCT USED FOR UNKNOWN INDICATION
     Dosage: 1000 ML, QD
     Route: 041
     Dates: start: 20150109, end: 20150109
  8. FILGRASTIM BS INJ. SYRINGE [Suspect]
     Active Substance: FILGRASTIM
     Indication: NEUTROPENIA
     Dosage: 75 UG/M2, QD
     Route: 058
     Dates: start: 20150119, end: 20150122
  9. ISOTONIC SODIUM CHLORIDE SOLUTION [Concomitant]
     Active Substance: SODIUM CHLORIDE
     Indication: PRODUCT USED FOR UNKNOWN INDICATION
     Dosage: 1700 ML, QD
     Route: 041
     Dates: start: 20150109, end: 20150109
  10. MAGNESIUM SULFATE. [Concomitant]
     Active Substance: MAGNESIUM SULFATE
     Indication: PROPHYLAXIS
     Dosage: 10 ML, QD
     Route: 065
     Dates: start: 20150109, end: 20150109
  11. MAGNESIUM SULFATE. [Concomitant]
     Active Substance: MAGNESIUM SULFATE
     Dosage: 10 ML, QD
     Route: 065
     Dates: start: 20150130, end: 20150130
  12. DEXART [Concomitant]
     Active Substance: DEXAMETHASONE SODIUM PHOSPHATE
     Indication: PROPHYLAXIS
     Dosage: 4 ML, QD
     Route: 042
     Dates: start: 20150109, end: 20150109
  13. DEXART [Concomitant]
     Active Substance: DEXAMETHASONE SODIUM PHOSPHATE
     Dosage: 4 ML, QD
     Route: 042
     Dates: start: 20150130, end: 20150130
  14. SOLDEM 3A [Concomitant]
     Active Substance: CARBOHYDRATES\POTASSIUM CHLORIDE\SODIUM CHLORIDE\SODIUM LACTATE
     Indication: PROPHYLAXIS
     Dosage: 500 ML, QD
     Route: 041
     Dates: start: 20150109, end: 20150109
  15. SOLDEM 3A [Concomitant]
     Active Substance: CARBOHYDRATES\POTASSIUM CHLORIDE\SODIUM CHLORIDE\SODIUM LACTATE
     Dosage: 500 ML, QD
     Route: 041
     Dates: start: 20150130, end: 20150130
  16. FILGRASTIM BS INJ. SYRINGE [Suspect]
     Active Substance: FILGRASTIM
     Dosage: 75 UG/M2, QD
     Route: 058
     Dates: start: 20150208, end: 20150209
  17. FUROSEMIDE. [Concomitant]
     Active Substance: FUROSEMIDE
     Indication: PROPHYLAXIS
     Dosage: 20 MG, QD
     Route: 042
     Dates: start: 20150109, end: 20150109
  18. MANNITOL. [Concomitant]
     Active Substance: MANNITOL
     Dosage: 200 ML, QD
     Route: 042
     Dates: start: 20150130, end: 20150130
  19. DOCETAXEL. [Suspect]
     Active Substance: DOCETAXEL
     Dosage: 118.86 MG, QD
     Route: 041
     Dates: start: 20150130, end: 20150130
  20. CISPLATIN. [Suspect]
     Active Substance: CISPLATIN
     Dosage: 158.48 MG, QD
     Route: 041
     Dates: start: 20150130, end: 20150130
  21. FILGRASTIM BS INJ. SYRINGE [Suspect]
     Active Substance: FILGRASTIM
     Dosage: 75 UG/M2, QD
     Route: 058
     Dates: start: 20150203, end: 20150205
  22. HARTMANN [Concomitant]
     Active Substance: CALCIUM CHLORIDE\POTASSIUM CHLORIDE\SODIUM CHLORIDE\SODIUM LACTATE
     Dosage: 1000 ML, QD
     Route: 041
     Dates: start: 20150130, end: 20150130
  23. ALOXI [Concomitant]
     Active Substance: PALONOSETRON HYDROCHLORIDE
     Dosage: 5 ML, QD
     Route: 042
     Dates: start: 20150130, end: 20150130
  24. GLICOSE [Concomitant]
     Active Substance: DEXTROSE
     Indication: PRODUCT USED FOR UNKNOWN INDICATION
     Dosage: 250 ML, QD
     Route: 041
     Dates: start: 20150109, end: 20150109
  25. ALOXI [Concomitant]
     Active Substance: PALONOSETRON HYDROCHLORIDE
     Indication: PROPHYLAXIS
     Dosage: 5 ML, QD
     Route: 042
     Dates: start: 20150109, end: 20150109
  26. FUROSEMIDE. [Concomitant]
     Active Substance: FUROSEMIDE
     Dosage: 20 MG, QD
     Route: 042
     Dates: start: 20150130, end: 20150130

REACTIONS (15)
  - Oropharyngeal pain [Recovering/Resolving]
  - Decreased appetite [Recovered/Resolved]
  - Constipation [Recovering/Resolving]
  - Nausea [Recovering/Resolving]
  - Anorexia nervosa [Recovering/Resolving]
  - Malaise [Recovering/Resolving]
  - White blood cell count decreased [Recovered/Resolved]
  - Malaise [Recovering/Resolving]
  - Face oedema [Unknown]
  - Oropharyngeal discomfort [Unknown]
  - Alopecia [Recovered/Resolved]
  - Dysgeusia [Unknown]
  - Constipation [Recovering/Resolving]
  - Abdominal discomfort [Recovering/Resolving]
  - Dysuria [Recovering/Resolving]

NARRATIVE: CASE EVENT DATE: 20150121
